FAERS Safety Report 13984353 (Version 3)
Quarter: 2017Q4

REPORT INFORMATION
  Report Type: Report from Study
  Country: US (occurrence: US)
  Receive Date: 20170918
  Receipt Date: 20171208
  Transmission Date: 20180321
  Serious: Yes (Hospitalization)
  Sender: FDA-Public Use
  Company Number: US-EISAI MEDICAL RESEARCH-EC-2015-010444

PATIENT
  Age: 57 Year
  Sex: Male
  Weight: 84 kg

DRUGS (18)
  1. PROSCAR [Concomitant]
     Active Substance: FINASTERIDE
  2. ATROVENT [Concomitant]
     Active Substance: IPRATROPIUM BROMIDE
  3. GLUCOPHAGE [Concomitant]
     Active Substance: METFORMIN HYDROCHLORIDE
  4. ZOCOR [Concomitant]
     Active Substance: SIMVASTATIN
  5. SYNTHROID [Concomitant]
     Active Substance: LEVOTHYROXINE SODIUM
  6. LENVIMA [Suspect]
     Active Substance: LENVATINIB
     Indication: THYROID CANCER
     Route: 048
     Dates: start: 20150722, end: 20151113
  7. COLACE [Concomitant]
     Active Substance: DOCUSATE SODIUM
  8. NIFEDIPINE. [Concomitant]
     Active Substance: NIFEDIPINE
  9. XANAX [Concomitant]
     Active Substance: ALPRAZOLAM
  10. LENVIMA [Suspect]
     Active Substance: LENVATINIB
     Route: 048
     Dates: start: 20171013, end: 20171118
  11. CALCIUM [Concomitant]
     Active Substance: CALCIUM
  12. PROMETHAZINE [Concomitant]
     Active Substance: PROMETHAZINE\PROMETHAZINE HYDROCHLORIDE
  13. GLUCOTROL [Concomitant]
     Active Substance: GLIPIZIDE
  14. LENVIMA [Suspect]
     Active Substance: LENVATINIB
     Route: 048
     Dates: end: 20160808
  15. COZAAR [Concomitant]
     Active Substance: LOSARTAN POTASSIUM
  16. LENVIMA [Suspect]
     Active Substance: LENVATINIB
     Route: 048
     Dates: start: 20160821, end: 201708
  17. ZOFRAN [Concomitant]
     Active Substance: ONDANSETRON HYDROCHLORIDE
  18. TYLENOL WITH CODEINE [Concomitant]
     Active Substance: ACETAMINOPHEN\CODEINE PHOSPHATE

REACTIONS (14)
  - Disease progression [Unknown]
  - Pancreatitis [Recovered/Resolved]
  - Malignant pleural effusion [Recovering/Resolving]
  - Vocal cord paralysis [Not Recovered/Not Resolved]
  - Aphonia [Unknown]
  - Pain in extremity [Unknown]
  - Pneumonia [Recovering/Resolving]
  - Hypertension [Unknown]
  - Malaise [Unknown]
  - Blood pressure fluctuation [Unknown]
  - Nausea [Recovered/Resolved]
  - Vomiting [Recovered/Resolved]
  - Conjunctival haemorrhage [Unknown]
  - Oral fungal infection [Unknown]

NARRATIVE: CASE EVENT DATE: 2015
